FAERS Safety Report 4998120-6 (Version None)
Quarter: 2006Q2

REPORT INFORMATION
  Report Type: 
  Country: None (occurrence: None)
  Receive Date: 20060510
  Receipt Date: 20050504
  Transmission Date: 20061013
  Serious: Yes (Hospitalization, Disabling)
  Sender: FDA-Public Use
  Company Number: US-MERCK-0505USA00593

PATIENT
  Age: 52 Year
  Sex: Female
  Weight: 58 kg

DRUGS (2)
  1. VIOXX [Suspect]
     Indication: INFLAMMATORY PAIN
     Route: 048
     Dates: start: 20001120, end: 20030419
  2. VIOXX [Suspect]
     Indication: WRIST SURGERY
     Route: 048
     Dates: start: 20001120, end: 20030419

REACTIONS (8)
  - CARDIAC ARREST [None]
  - CARDIAC DISORDER [None]
  - CARDIAC FAILURE [None]
  - FALL [None]
  - FOOT FRACTURE [None]
  - JOINT INSTABILITY [None]
  - MYOCARDIAL INFARCTION [None]
  - OVERDOSE [None]
